FAERS Safety Report 23197739 (Version 1)
Quarter: 2023Q4

REPORT INFORMATION
  Report Type: Spontaneous
  Country: DE (occurrence: DE)
  Receive Date: 20231117
  Receipt Date: 20231117
  Transmission Date: 20240109
  Serious: Yes (Hospitalization, Other)
  Sender: FDA-Public Use
  Company Number: None

PATIENT
  Age: 46 Year
  Sex: Female
  Weight: 54 kg

DRUGS (5)
  1. DAPTOMYCIN [Suspect]
     Active Substance: DAPTOMYCIN
     Indication: Endocarditis
     Dates: start: 20230916, end: 20231004
  2. ENTRESTO [Concomitant]
     Active Substance: SACUBITRIL\VALSARTAN
     Indication: Left ventricular failure
     Dosage: 2 DOSAGE FORMS DAILY; 1-0-1; ENTRESTO 24/26 MG
  3. DAPAGLIFLOZIN [Concomitant]
     Active Substance: DAPAGLIFLOZIN
     Indication: Left ventricular failure
     Dosage: 10 MILLIGRAM DAILY; 1-0-0
  4. EPLERENONE [Concomitant]
     Active Substance: EPLERENONE
     Indication: Left ventricular failure
     Dosage: 25 MILLIGRAM DAILY; 1-0-0
  5. MARCUMAR [Concomitant]
     Active Substance: PHENPROCOUMON
     Indication: Heart valve replacement
     Dosage: ACCORDING TO INR; MARCUMAR 3 MG
     Dates: start: 2011

REACTIONS (3)
  - Blood creatine phosphokinase increased [Recovering/Resolving]
  - Pain [Recovering/Resolving]
  - Administration site pain [Recovering/Resolving]

NARRATIVE: CASE EVENT DATE: 20231004
